FAERS Safety Report 10968364 (Version 1)
Quarter: 2015Q1

REPORT INFORMATION
  Report Type: Spontaneous
  Country: GB (occurrence: GB)
  Receive Date: 20150330
  Receipt Date: 20150330
  Transmission Date: 20150721
  Serious: Yes (Other)
  Sender: FDA-Public Use
  Company Number: PHHY2015GB034040

PATIENT
  Age: 26 Year
  Sex: Female
  Weight: 92.52 kg

DRUGS (8)
  1. CETIRIZINE HYDROCHLORIDE. [Concomitant]
     Active Substance: CETIRIZINE HYDROCHLORIDE
     Indication: PRODUCT USED FOR UNKNOWN INDICATION
     Route: 065
  2. PHENYLEPHRINE [Concomitant]
     Active Substance: PHENYLEPHRINE\PHENYLEPHRINE HYDROCHLORIDE
     Indication: PRODUCT USED FOR UNKNOWN INDICATION
     Route: 065
  3. CAFFEINE. [Concomitant]
     Active Substance: CAFFEINE
     Indication: PRODUCT USED FOR UNKNOWN INDICATION
     Route: 065
  4. PAROXETINE [Suspect]
     Active Substance: PAROXETINE\PAROXETINE HYDROCHLORIDE
     Dosage: 20 MG, UNK
     Dates: end: 20150228
  5. IBUPROFEN. [Concomitant]
     Active Substance: IBUPROFEN
     Indication: PRODUCT USED FOR UNKNOWN INDICATION
     Route: 065
  6. PARACETAMOL [Concomitant]
     Active Substance: ACETAMINOPHEN
     Indication: PRODUCT USED FOR UNKNOWN INDICATION
     Route: 065
  7. SYMBICORT [Concomitant]
     Active Substance: BUDESONIDE\FORMOTEROL FUMARATE DIHYDRATE
     Indication: PRODUCT USED FOR UNKNOWN INDICATION
     Route: 065
  8. PAROXETINE [Suspect]
     Active Substance: PAROXETINE\PAROXETINE HYDROCHLORIDE
     Indication: ANXIETY
     Dosage: 30 MG, UNK
     Route: 065
     Dates: start: 20150201

REACTIONS (13)
  - Anger [Unknown]
  - Crying [Unknown]
  - Paraesthesia [Not Recovered/Not Resolved]
  - Dizziness [Not Recovered/Not Resolved]
  - Anxiety [Unknown]
  - Irritability [Unknown]
  - Abnormal weight gain [Not Recovered/Not Resolved]
  - Depression [Unknown]
  - Autophobia [Unknown]
  - Headache [Recovering/Resolving]
  - Withdrawal syndrome [Unknown]
  - Hyperhidrosis [Unknown]
  - Condition aggravated [Unknown]

NARRATIVE: CASE EVENT DATE: 20150210
